FAERS Safety Report 6905697-X (Version None)
Quarter: 2010Q3

REPORT INFORMATION
  Report Type: 
  Country: None (occurrence: None)
  Receive Date: 20100804
  Receipt Date: 20100723
  Transmission Date: 20110219
  Serious: Yes (Death, Hospitalization, Other)
  Sender: FDA-Public Use
  Company Number: CZ-BAYER-201033761GPV

PATIENT
  Age: 76 Year
  Sex: Female

DRUGS (23)
  1. FLUDARA [Suspect]
     Indication: CHRONIC LYMPHOCYTIC LEUKAEMIA
     Route: 048
     Dates: start: 20100611, end: 20100613
  2. FLUDARA [Suspect]
     Route: 048
     Dates: start: 20100430, end: 20100502
  3. MABTHERA [Concomitant]
     Indication: CHRONIC LYMPHOCYTIC LEUKAEMIA
  4. CYCLOPHOSPHAMIDE [Concomitant]
     Indication: CHRONIC LYMPHOCYTIC LEUKAEMIA
  5. EUTHYROX 50 [Concomitant]
  6. NITROMINT AER [Concomitant]
  7. HELICID [Concomitant]
  8. NITROFURANTOIN [Concomitant]
  9. MAGNOSOLV [Concomitant]
  10. OXYPHYLLIN [Concomitant]
  11. GODASAL [Concomitant]
  12. COXTRAL [Concomitant]
     Dosage: ON DEMAND
  13. PARALEN [Concomitant]
  14. OXYCONTIN [Concomitant]
  15. MILURIT [Concomitant]
  16. COTRIMOXAZOL AL [Concomitant]
  17. ACYCLOVIR [Concomitant]
     Indication: PROPHYLAXIS
     Dates: start: 20100430
  18. DEGAN [Concomitant]
     Indication: PROPHYLAXIS OF NAUSEA AND VOMITING
  19. CALCIUM EFF [Concomitant]
  20. FURON [Concomitant]
  21. DUPHALAC SIR 20 ML / LACTULOSE [Concomitant]
  22. NEULASTA [Concomitant]
     Dosage: FOLLOWING THE CHEMOTHERAPY
  23. NEULOVEN [Concomitant]

REACTIONS (11)
  - ARRHYTHMIA [None]
  - ASTHENIA [None]
  - DEATH [None]
  - DECREASED APPETITE [None]
  - DILATATION VENTRICULAR [None]
  - GENERAL PHYSICAL HEALTH DETERIORATION [None]
  - LEUKOPENIA [None]
  - LOSS OF CONSCIOUSNESS [None]
  - UPPER RESPIRATORY TRACT INFECTION [None]
  - URINARY TRACT INFECTION [None]
  - VERTIGO [None]
